FAERS Safety Report 17420026 (Version 2)
Quarter: 2020Q1

REPORT INFORMATION
  Report Type: Spontaneous
  Country: US (occurrence: US)
  Receive Date: 20200214
  Receipt Date: 20200316
  Transmission Date: 20200409
  Serious: No
  Sender: FDA-Public Use
  Company Number: US-PFIZER INC-2020062892

PATIENT
  Age: 63 Year
  Sex: Female

DRUGS (1)
  1. XELJANZ XR [Suspect]
     Active Substance: TOFACITINIB CITRATE
     Indication: RHEUMATOID ARTHRITIS
     Dosage: 11 MG, DAILY
     Route: 048
     Dates: start: 2018

REACTIONS (4)
  - Osteoarthritis [Unknown]
  - Gait disturbance [Unknown]
  - Arthritis [Unknown]
  - Condition aggravated [Unknown]
